FAERS Safety Report 11110424 (Version 1)
Quarter: 2015Q2

REPORT INFORMATION
  Report Type: Spontaneous
  Country: DE (occurrence: DE)
  Receive Date: 20150513
  Receipt Date: 20150513
  Transmission Date: 20150821
  Serious: Yes (Hospitalization, Other)
  Sender: FDA-Public Use
  Company Number: DE-MUNDIPHARMA DS AND PHARMACOVIGILANCE-DEU-2015-0016729

PATIENT
  Age: 78 Year
  Sex: Male
  Weight: 79 kg

DRUGS (2)
  1. UNIPHYLLIN 400 MG, RETARDTABLETTEN [Suspect]
     Active Substance: THEOPHYLLINE ANHYDROUS
     Dosage: 400 MG, DAILY
     Route: 048
     Dates: end: 20150421
  2. UNIPHYLLIN 400 MG, RETARDTABLETTEN [Suspect]
     Active Substance: THEOPHYLLINE ANHYDROUS
     Indication: CHRONIC OBSTRUCTIVE PULMONARY DISEASE
     Dosage: 2000 MG, Q48H
     Route: 048
     Dates: start: 20150422, end: 20150423

REACTIONS (2)
  - Hypertensive crisis [Not Recovered/Not Resolved]
  - Bronchopneumonia [Unknown]

NARRATIVE: CASE EVENT DATE: 20150424
